FAERS Safety Report 13084334 (Version 5)
Quarter: 2017Q1

REPORT INFORMATION
  Report Type: Spontaneous
  Country: CA (occurrence: CA)
  Receive Date: 20170104
  Receipt Date: 20170220
  Transmission Date: 20170428
  Serious: Yes (Hospitalization, Other)
  Sender: FDA-Public Use
  Company Number: CA-GLAXOSMITHKLINE-CA2016GSK192867

PATIENT
  Sex: Female

DRUGS (1)
  1. NUCALA [Suspect]
     Active Substance: MEPOLIZUMAB
     Indication: ASTHMA
     Dosage: 100 MG, Z
     Route: 042
     Dates: start: 20160906

REACTIONS (8)
  - Nodule [Not Recovered/Not Resolved]
  - Productive cough [Unknown]
  - Drug dose omission [Unknown]
  - Oxygen saturation decreased [Unknown]
  - Cellulitis [Not Recovered/Not Resolved]
  - Viral infection [Unknown]
  - Pyrexia [Unknown]
  - Loss of consciousness [Unknown]
